FAERS Safety Report 26058228 (Version 1)
Quarter: 2025Q4

REPORT INFORMATION
  Report Type: Spontaneous
  Country: US (occurrence: US)
  Receive Date: 20251118
  Receipt Date: 20251118
  Transmission Date: 20260118
  Serious: No
  Sender: AUROBINDO
  Company Number: US-AUROBINDO-AUR-APL-2025-012463

PATIENT
  Age: 75 Year
  Sex: Female
  Weight: 54.422 kg

DRUGS (3)
  1. CLONAZEPAM [Suspect]
     Active Substance: CLONAZEPAM
     Indication: Anxiety
     Dosage: A QUARTER OF A PILL BEFORE SLEEP
     Route: 048
  2. CLONAZEPAM [Suspect]
     Active Substance: CLONAZEPAM
     Indication: Sleep disorder
  3. CLONAZEPAM [Suspect]
     Active Substance: CLONAZEPAM
     Indication: Nasopharyngitis

REACTIONS (8)
  - Hypoacusis [Unknown]
  - Dysarthria [Unknown]
  - Anxiety [Unknown]
  - Treatment noncompliance [Unknown]
  - Drug ineffective [Unknown]
  - Intentional product use issue [Unknown]
  - Intentional dose omission [Unknown]
  - Wrong technique in product usage process [Unknown]
